FAERS Safety Report 8507587-8 (Version None)
Quarter: 2012Q3

REPORT INFORMATION
  Report Type: 
  Country: None (occurrence: None)
  Receive Date: 20120713
  Receipt Date: 20120705
  Transmission Date: 20120928
  Serious: Yes (Hospitalization, Other)
  Sender: FDA-Public Use
  Company Number: US-BIOGENIDEC-2012BI024052

PATIENT
  Age: 52 Year
  Sex: Male

DRUGS (2)
  1. AVONEX [Suspect]
     Indication: MULTIPLE SCLEROSIS
     Route: 030
     Dates: start: 20030101, end: 20100101
  2. AVONEX [Suspect]
     Route: 030
     Dates: start: 20100101

REACTIONS (8)
  - VOMITING [None]
  - FATIGUE [None]
  - DEHYDRATION [None]
  - GAIT DISTURBANCE [None]
  - PROSTATE CANCER [None]
  - FEELING HOT [None]
  - DECREASED APPETITE [None]
  - VERTIGO [None]
